FAERS Safety Report 9143989 (Version 1)
Quarter: 2013Q1

REPORT INFORMATION
  Report Type: Spontaneous
  Country: IT (occurrence: IT)
  Receive Date: 20130306
  Receipt Date: 20130306
  Transmission Date: 20140127
  Serious: Yes (Hospitalization)
  Sender: FDA-Public Use
  Company Number: IT-JNJFOC-20130215133

PATIENT
  Age: 62 Year
  Sex: Female

DRUGS (3)
  1. SERENASE [Suspect]
     Indication: DRUG ABUSE
     Dosage: 2 MG/ML
     Route: 048
     Dates: start: 20130104, end: 20130104
  2. PRAZENE [Suspect]
     Indication: DRUG ABUSE
     Dosage: 15 MG/ML
     Route: 048
     Dates: start: 20130104, end: 20130104
  3. LAROXYL [Suspect]
     Indication: DRUG ABUSE
     Dosage: 40 MG/ML
     Route: 048
     Dates: start: 20130104, end: 20130104

REACTIONS (7)
  - Sopor [Recovering/Resolving]
  - Self injurious behaviour [Unknown]
  - Intentional overdose [Unknown]
  - Toxicity to various agents [None]
  - Mood altered [None]
  - Sinus tachycardia [None]
  - Electrocardiogram QT prolonged [None]
